FAERS Safety Report 4347755-2 (Version None)
Quarter: 2004Q2

REPORT INFORMATION
  Report Type: 
  Country: None (occurrence: None)
  Receive Date: 20040427
  Receipt Date: 20040304
  Transmission Date: 20050107
  Serious: Yes (Hospitalization)
  Sender: FDA-Public Use
  Company Number: 200410750JP

PATIENT
  Age: 34 Year
  Sex: Male

DRUGS (5)
  1. KETEK [Suspect]
     Indication: PHARYNGITIS
     Route: 048
     Dates: start: 20040218, end: 20040223
  2. CLARITH [Concomitant]
     Indication: PHARYNGITIS
     Route: 048
     Dates: start: 20040216, end: 20040220
  3. NIFLAN [Concomitant]
     Indication: PHARYNGITIS
     Route: 048
     Dates: start: 20040216, end: 20040220
  4. ASTHPHYLLIN [Concomitant]
     Indication: PHARYNGITIS
     Dosage: DOSE UNIT: UNITS
     Route: 048
     Dates: start: 20040216, end: 20040220
  5. TOPICAIN [Concomitant]
     Indication: PHARYNGITIS
     Route: 048
     Dates: start: 20040216, end: 20040220

REACTIONS (4)
  - ACUTE TONSILLITIS [None]
  - HYPERSENSITIVITY [None]
  - KLEBSIELLA INFECTION [None]
  - ORAL CANDIDIASIS [None]
